FAERS Safety Report 6502015-6 (Version None)
Quarter: 2009Q4

REPORT INFORMATION
  Report Type: 
  Country: None (occurrence: None)
  Receive Date: 20091216
  Receipt Date: 20091208
  Transmission Date: 20100525
  Serious: Yes (Other)
  Sender: FDA-Public Use
  Company Number: US-AMGEN-QUU379066

PATIENT
  Age: 62 Year
  Sex: Female

DRUGS (2)
  1. ENBREL [Suspect]
     Indication: DRUG USE FOR UNKNOWN INDICATION
     Dates: start: 20080301
  2. METHOTREXATE [Concomitant]

REACTIONS (3)
  - CENTRAL NERVOUS SYSTEM LESION [None]
  - MENTAL IMPAIRMENT [None]
  - MULTIPLE SCLEROSIS [None]
